FAERS Safety Report 9379024 (Version 1)
Quarter: 2013Q3

REPORT INFORMATION
  Report Type: Spontaneous
  Country: JP (occurrence: JP)
  Receive Date: 20130702
  Receipt Date: 20130702
  Transmission Date: 20140515
  Serious: Yes (Hospitalization, Other)
  Sender: FDA-Public Use
  Company Number: JP-BRISTOL-MYERS SQUIBB COMPANY-19044122

PATIENT
  Age: 48 Year
  Sex: Male

DRUGS (3)
  1. STOCRIN TABS 600 MG [Suspect]
     Indication: HIV INFECTION
     Dosage: FILM COATED TABLETS
     Route: 048
  2. TRUVADA [Concomitant]
     Dosage: TABLET
  3. FAMOTIDINE TABS [Concomitant]

REACTIONS (2)
  - Cerebral infarction [Recovering/Resolving]
  - Dyslalia [Recovering/Resolving]
